FAERS Safety Report 9234979 (Version 1)
Quarter: 2013Q2

REPORT INFORMATION
  Report Type: Spontaneous
  Country: US (occurrence: US)
  Receive Date: 20130416
  Receipt Date: 20130416
  Transmission Date: 20140414
  Serious: Yes (Other)
  Sender: FDA-Public Use
  Company Number: US-TEVA-397708USA

PATIENT
  Age: 7 Month
  Sex: Male

DRUGS (1)
  1. CEFALEXIN [Suspect]
     Indication: CELLULITIS
     Dosage: 250MG/5ML
     Route: 048
     Dates: start: 201303, end: 201303

REACTIONS (1)
  - Coeliac disease [Unknown]
